FAERS Safety Report 10883956 (Version 1)
Quarter: 2015Q1

REPORT INFORMATION
  Report Type: Report from Study
  Country: AU (occurrence: AU)
  Receive Date: 20150304
  Receipt Date: 20150304
  Transmission Date: 20150721
  Serious: Yes (Hospitalization)
  Sender: FDA-Public Use
  Company Number: AU-INVENTIA-000031

PATIENT
  Age: 26 Year
  Sex: Female

DRUGS (5)
  1. NUROFEN [Suspect]
     Active Substance: IBUPROFEN
  2. NOVORAPID [Suspect]
     Active Substance: INSULIN ASPART
     Dosage: 900 UNITS
  3. PROTAPHANE [Suspect]
     Active Substance: INSULIN HUMAN
     Dosage: PROTOPHANE 100 UNITS
  4. METFORMIN [Suspect]
     Active Substance: METFORMIN HYDROCHLORIDE
     Dosage: IMMEDIATE RELEASE PREPARATIONS
  5. PARACETAMOL [Suspect]
     Active Substance: ACETAMINOPHEN

REACTIONS (5)
  - Hypoglycaemia [Unknown]
  - Renal failure [Unknown]
  - Lactic acidosis [Unknown]
  - Tachycardia [Unknown]
  - Intentional overdose [Unknown]
